FAERS Safety Report 6578721-4 (Version None)
Quarter: 2010Q1

REPORT INFORMATION
  Report Type: 
  Country: None (occurrence: None)
  Receive Date: 20100202
  Receipt Date: 20100119
  Transmission Date: 20100710
  Serious: Yes (Hospitalization, Other)
  Sender: FDA-Public Use
  Company Number: WAES 1001USA02587

PATIENT
  Age: 76 Year
  Sex: Male

DRUGS (9)
  1. VYTORIN [Suspect]
     Indication: ACUTE CORONARY SYNDROME
     Dosage: 10-40 MG/DAILY PO
     Route: 048
     Dates: start: 20080128, end: 20081114
  2. TAB PLACEBO (UNSPECIFIED) [Suspect]
     Indication: ACUTE CORONARY SYNDROME
     Dosage: PO
     Route: 048
     Dates: start: 20080128, end: 20091114
  3. LEVOTHYROXINE SODIUM [Concomitant]
  4. SERETIDE [Concomitant]
  5. AMIODARONE HCL [Concomitant]
  6. ASPIRIN [Concomitant]
  7. LISINOPRIL [Concomitant]
  8. TORSEMIDE [Concomitant]
  9. WARFARIN SODIUM [Concomitant]

REACTIONS (2)
  - ASPERGILLOMA [None]
  - LUNG NEOPLASM MALIGNANT [None]
